FAERS Safety Report 24766316 (Version 1)
Quarter: 2024Q4

REPORT INFORMATION
  Report Type: Spontaneous
  Country: US (occurrence: US)
  Receive Date: 20241223
  Receipt Date: 20241223
  Transmission Date: 20250115
  Serious: Yes (Other)
  Sender: PFIZER
  Company Number: US-PFIZER INC-PV202400165302

PATIENT
  Age: 52 Year
  Sex: Male

DRUGS (1)
  1. INLYTA [Suspect]
     Active Substance: AXITINIB
     Dosage: UNK

REACTIONS (6)
  - Renal surgery [Unknown]
  - Pancreatic operation [Unknown]
  - Fatigue [Unknown]
  - Abdominal discomfort [Unknown]
  - Bone pain [Recovered/Resolved]
  - Myalgia [Recovered/Resolved]
